FAERS Safety Report 7427490-4 (Version None)
Quarter: 2011Q2

REPORT INFORMATION
  Report Type: 
  Country: None (occurrence: None)
  Receive Date: 20110420
  Receipt Date: 20110408
  Transmission Date: 20111010
  Serious: No
  Sender: FDA-Public Use
  Company Number: US-ELI_LILLY_AND_COMPANY-US201009006987

PATIENT
  Sex: Female

DRUGS (27)
  1. AVAPRO [Concomitant]
  2. FUROSEMIDE [Concomitant]
  3. IRON [Concomitant]
  4. ALTACE [Concomitant]
  5. METOCLOPRAMIDE [Concomitant]
  6. HYDRALAZINE [Concomitant]
  7. BYETTA [Concomitant]
  8. ASCORBIC ACID [Concomitant]
  9. TYLENOL (CAPLET) [Concomitant]
     Dosage: 1000 MG, AS NEEDED
  10. FORTEO [Suspect]
     Indication: OSTEOPOROSIS
     Dosage: 20 UG, DAILY (1/D)
     Dates: start: 20100913
  11. NIFEDIPINE [Concomitant]
  12. ALDOMET [Concomitant]
  13. PREDNISONE [Concomitant]
  14. HYDROCODONE [Concomitant]
  15. CATAPRES /00171101/ [Concomitant]
  16. PROGRAF [Concomitant]
  17. VITAMIN D [Concomitant]
  18. CELLCEPT [Concomitant]
  19. FOLGARD [Concomitant]
  20. LIPITOR [Concomitant]
  21. MULTI-VITAMIN [Concomitant]
  22. DARVON [Concomitant]
  23. COREG [Concomitant]
  24. ASPIRIN [Concomitant]
  25. PEPCID [Concomitant]
  26. VITAMIN B6 [Concomitant]
  27. MIRTAZAPINE [Concomitant]

REACTIONS (1)
  - BONE PAIN [None]
